FAERS Safety Report 9100435 (Version 1)
Quarter: 2013Q1

REPORT INFORMATION
  Report Type: Spontaneous
  Country: US (occurrence: US)
  Receive Date: 20130215
  Receipt Date: 20130215
  Transmission Date: 20140127
  Serious: Yes (Other)
  Sender: FDA-Public Use
  Company Number: US-PFIZER INC-2013057754

PATIENT
  Age: 75 Year
  Sex: Female

DRUGS (10)
  1. LYRICA [Suspect]
     Dosage: 100 MG, 2X/DAY
  2. CRESTOR [Concomitant]
  3. PLAVIX [Concomitant]
  4. VALSARTAN [Concomitant]
  5. ADVAIR [Concomitant]
  6. SPIRIVA [Concomitant]
  7. ACETYLSALICYLIC ACID [Concomitant]
  8. CLONAZEPAM [Concomitant]
  9. METFORMIN [Concomitant]
  10. IMDUR [Concomitant]

REACTIONS (1)
  - Arterial occlusive disease [Unknown]
